FAERS Safety Report 24314676 (Version 1)
Quarter: 2024Q3

REPORT INFORMATION
  Report Type: Spontaneous
  Country: US (occurrence: None)
  Receive Date: 20240913
  Receipt Date: 20240913
  Transmission Date: 20241016
  Serious: Yes (Hospitalization, Other)
  Sender: NODEN PHARMA
  Company Number: US-Noden Pharma DAC-NOD202409-000121

PATIENT
  Age: 29 Year
  Sex: Male
  Weight: 133.8 kg

DRUGS (1)
  1. COCAINE HYDROCHLORIDE [Suspect]
     Active Substance: COCAINE HYDROCHLORIDE
     Indication: Product used for unknown indication
     Dosage: UNKNOWN

REACTIONS (8)
  - Goodpasture^s syndrome [Unknown]
  - Acute kidney injury [Unknown]
  - Acute respiratory failure [Unknown]
  - Pulmonary alveolar haemorrhage [Unknown]
  - Haemoptysis [Unknown]
  - Normochromic normocytic anaemia [Unknown]
  - Haematemesis [Unknown]
  - Abnormal loss of weight [Unknown]
